FAERS Safety Report 25840268 (Version 5)
Quarter: 2025Q4

REPORT INFORMATION
  Report Type: Spontaneous
  Country: EU (occurrence: EU)
  Receive Date: 20250924
  Receipt Date: 20251009
  Transmission Date: 20260118
  Serious: Yes (Hospitalization, Other)
  Sender: SANDOZ
  Company Number: EU-PFIZER INC-PV202500109458

PATIENT
  Age: 59 Year
  Sex: Male

DRUGS (2)
  1. ADALIMUMAB [Suspect]
     Active Substance: ADALIMUMAB
     Indication: Ankylosing spondylitis
     Dosage: 40 MILLIGRAM, Q2WK
     Route: 058
     Dates: start: 201909, end: 202008
  2. ADALIMUMAB [Suspect]
     Active Substance: ADALIMUMAB
     Dosage: UNK
     Route: 065
     Dates: start: 202110

REACTIONS (4)
  - Antisynthetase syndrome [Not Recovered/Not Resolved]
  - Antisynthetase syndrome [Unknown]
  - Therapeutic product effect incomplete [Unknown]
  - Ankylosing spondylitis [Unknown]

NARRATIVE: CASE EVENT DATE: 20200801
